FAERS Safety Report 25377660 (Version 1)
Quarter: 2025Q2

REPORT INFORMATION
  Report Type: Spontaneous
  Country: TR (occurrence: TR)
  Receive Date: 20250530
  Receipt Date: 20250530
  Transmission Date: 20250717
  Serious: Yes (Death)
  Sender: ROCHE
  Company Number: TR-ROCHE-10000294332

PATIENT
  Age: 3 Day
  Weight: 0.5 kg

DRUGS (1)
  1. OCREVUS [Suspect]
     Active Substance: OCRELIZUMAB
     Indication: Product used for unknown indication
     Route: 064
     Dates: start: 202407

REACTIONS (2)
  - Foetal exposure during pregnancy [Unknown]
  - Death [Fatal]
